FAERS Safety Report 16395302 (Version 1)
Quarter: 2019Q2

REPORT INFORMATION
  Report Type: Spontaneous
  Country: FR (occurrence: FR)
  Receive Date: 20190605
  Receipt Date: 20190605
  Transmission Date: 20190711
  Serious: Yes (Hospitalization)
  Sender: FDA-Public Use
  Company Number: FR-MYLANLABS-2019M1051542

PATIENT
  Age: 79 Year
  Sex: Male
  Weight: 84 kg

DRUGS (1)
  1. IBUPROFEN. [Suspect]
     Active Substance: IBUPROFEN
     Indication: VIRAL PHARYNGITIS
     Dosage: 1200 MILLIGRAM, QD
     Route: 048
     Dates: start: 20181003, end: 20181005

REACTIONS (1)
  - Peritonsillar abscess [Recovering/Resolving]

NARRATIVE: CASE EVENT DATE: 20181005
